FAERS Safety Report 22379911 (Version 5)
Quarter: 2024Q2

REPORT INFORMATION
  Report Type: Report from Study
  Country: US (occurrence: US)
  Receive Date: 20230529
  Receipt Date: 20240416
  Transmission Date: 20240715
  Serious: No
  Sender: FDA-Public Use
  Company Number: US-002147023-NVSC2023US117930

PATIENT
  Age: 53 Year
  Sex: Female

DRUGS (1)
  1. KESIMPTA [Suspect]
     Active Substance: OFATUMUMAB
     Indication: Relapsing multiple sclerosis
     Dosage: 20 MG, QMO
     Route: 058
     Dates: start: 20230119, end: 20240312

REACTIONS (9)
  - Paraesthesia [Unknown]
  - Condition aggravated [Unknown]
  - Poor quality sleep [Unknown]
  - Balance disorder [Unknown]
  - Crying [Unknown]
  - Fatigue [Unknown]
  - Headache [Recovered/Resolved]
  - Muscle twitching [Unknown]
  - Drug ineffective [Unknown]

NARRATIVE: CASE EVENT DATE: 20240312
